FAERS Safety Report 10161634 (Version 2)
Quarter: 2014Q2

REPORT INFORMATION
  Report Type: Report from Study
  Country: US (occurrence: US)
  Receive Date: 20140509
  Receipt Date: 20140509
  Transmission Date: 20141212
  Serious: Yes (Hospitalization)
  Sender: FDA-Public Use
  Company Number: US-BRISTOL-MYERS SQUIBB COMPANY-16606360

PATIENT
  Age: 66 Year
  Sex: Male

DRUGS (5)
  1. SAXAGLIPTIN [Suspect]
     Indication: TYPE 2 DIABETES MELLITUS
     Dates: start: 20110405
  2. HUMALOG [Suspect]
     Indication: TYPE 2 DIABETES MELLITUS
  3. LANTUS [Suspect]
     Indication: TYPE 2 DIABETES MELLITUS
  4. PERCOCET [Suspect]
     Indication: BACK PAIN
     Dates: start: 20120528, end: 20120530
  5. ASPIRIN [Concomitant]
     Dosage: 1DF={100MG

REACTIONS (4)
  - Nocturnal dyspnoea [Recovered/Resolved]
  - Accidental overdose [Unknown]
  - Lumbar radiculopathy [Not Recovered/Not Resolved]
  - Encephalopathy [Unknown]
